FAERS Safety Report 6045182-3 (Version None)
Quarter: 2009Q1

REPORT INFORMATION
  Report Type: 
  Country: None (occurrence: None)
  Receive Date: 20090116
  Receipt Date: 20090116
  Transmission Date: 20090719
  Serious: Yes (Hospitalization)
  Sender: FDA-Public Use
  Company Number: None

PATIENT
  Age: 59 Year
  Sex: Male
  Weight: 92.9874 kg

DRUGS (2)
  1. SIMVASTATIN [Suspect]
     Indication: BLOOD CHOLESTEROL INCREASED
     Dosage: 40 MG 1 DAILY
     Dates: start: 20081208, end: 20081212
  2. SIMVASTATIN [Suspect]
     Indication: BLOOD CHOLESTEROL INCREASED
     Dosage: 40 MG 1 DAILY
     Dates: start: 20081215, end: 20090114

REACTIONS (7)
  - DIARRHOEA [None]
  - HYPERHIDROSIS [None]
  - MALAISE [None]
  - PARAESTHESIA [None]
  - RHINORRHOEA [None]
  - TREMOR [None]
  - VOMITING [None]
